FAERS Safety Report 8193105 (Version 3)
Quarter: 2014Q4

REPORT INFORMATION
  Report Type: Spontaneous
  Country: US (occurrence: US)
  Receive Date: 20111021
  Receipt Date: 20141126
  Transmission Date: 20150529
  Serious: Yes (Other)
  Sender: FDA-Public Use
  Company Number: US-PFIZER INC-2011252020

PATIENT
  Age: 53 Year
  Sex: Female
  Weight: 97.5 kg

DRUGS (21)
  1. VALIUM [Concomitant]
     Active Substance: DIAZEPAM
  2. LYRICA [Suspect]
     Active Substance: PREGABALIN
     Indication: NEUROPATHY PERIPHERAL
     Dosage: 175 MG, 3X/DAY
     Route: 048
     Dates: start: 2010
  3. LISINOPRIL. [Suspect]
     Active Substance: LISINOPRIL
     Route: 048
  4. SOMA [Concomitant]
     Active Substance: CARISOPRODOL
  5. ACETYLCYSTEINE. [Concomitant]
     Active Substance: ACETYLCYSTEINE
     Indication: SECRETION DISCHARGE
  6. LYRICA [Suspect]
     Active Substance: PREGABALIN
     Dosage: UNK
  7. POTASSIUM [Concomitant]
     Active Substance: POTASSIUM
  8. LYRICA [Suspect]
     Active Substance: PREGABALIN
     Indication: FIBROMYALGIA
     Dosage: 150 MG, 3X/DAY
     Route: 048
     Dates: start: 2010, end: 2010
  9. LYRICA [Suspect]
     Active Substance: PREGABALIN
     Dosage: 100 MG, 2X/DAY
     Dates: start: 201008, end: 20100829
  10. CYMBALTA [Concomitant]
     Active Substance: DULOXETINE HYDROCHLORIDE
  11. METFORMIN [Concomitant]
     Active Substance: METFORMIN HYDROCHLORIDE
  12. MONOPRIL [Suspect]
     Active Substance: FOSINOPRIL SODIUM
  13. LYRICA [Suspect]
     Active Substance: PREGABALIN
     Indication: BACK PAIN
     Dosage: 150 MG, 2X/DAY
     Route: 048
     Dates: start: 2010, end: 2010
  14. L-TYROSINE [Concomitant]
     Indication: NERVOUS SYSTEM DISORDER
     Dosage: 1000 MG, 3X/DAY
  15. ACETYLCYSTEINE. [Concomitant]
     Active Substance: ACETYLCYSTEINE
     Indication: NERVOUS SYSTEM DISORDER
     Dosage: 600 MG, 2X/DAY
  16. ATENOLOL. [Suspect]
     Active Substance: ATENOLOL
  17. ATACAND [Suspect]
     Active Substance: CANDESARTAN CILEXETIL
     Route: 048
  18. PERCOCET [Concomitant]
     Active Substance: ACETAMINOPHEN\OXYCODONE HYDROCHLORIDE
  19. HYDROCHLOROTHIAZIDE. [Concomitant]
     Active Substance: HYDROCHLOROTHIAZIDE
  20. LYRICA [Suspect]
     Active Substance: PREGABALIN
     Indication: NEUROPATHY PERIPHERAL
     Dosage: 200 MG, 3X/DAY
     Route: 048
  21. METHYLFOLATE [Concomitant]
     Indication: NERVOUS SYSTEM DISORDER
     Dosage: 800 MCG, 3X/DAY

REACTIONS (8)
  - Blood cholesterol increased [Unknown]
  - Fibromyalgia [Unknown]
  - Renal impairment [Unknown]
  - Back disorder [Unknown]
  - Mental impairment [Unknown]
  - Neuropathy peripheral [Unknown]
  - Neuralgia [Recovering/Resolving]
  - Road traffic accident [Unknown]

NARRATIVE: CASE EVENT DATE: 2007
